FAERS Safety Report 24289688 (Version 3)
Quarter: 2025Q4

REPORT INFORMATION
  Report Type: Report from Study
  Country: US (occurrence: US)
  Receive Date: 20240906
  Receipt Date: 20251231
  Transmission Date: 20260118
  Serious: Yes (Hospitalization, Other)
  Sender: NOVARTIS
  Company Number: US-002147023-NVSC2024US022467

PATIENT
  Age: 89 Year
  Sex: Female
  Weight: 40.369 kg

DRUGS (3)
  1. TASIGNA [Suspect]
     Active Substance: NILOTINIB
     Indication: Product used for unknown indication
     Dosage: 150 MG, BID
     Route: 048
     Dates: start: 20230217
  2. GLEEVEC [Suspect]
     Active Substance: IMATINIB MESYLATE
     Indication: Product used for unknown indication
     Dosage: UNK
     Route: 065
  3. AMOXICILLIN [Concomitant]
     Active Substance: AMOXICILLIN
     Indication: Dental care
     Dosage: 2 DOSAGE FORM, UNKNOWN
     Route: 065

REACTIONS (17)
  - Regurgitation [Recovered/Resolved]
  - Dehydration [Unknown]
  - Underweight [Unknown]
  - Foreign body in throat [Unknown]
  - Nausea [Unknown]
  - Retching [Unknown]
  - Back pain [Not Recovered/Not Resolved]
  - Decreased appetite [Unknown]
  - Fatigue [Unknown]
  - Asthenia [Unknown]
  - Eructation [Unknown]
  - Skin discolouration [Unknown]
  - Abdominal discomfort [Unknown]
  - Chest pain [Recovered/Resolved]
  - Flatulence [Unknown]
  - Dysphagia [Unknown]
  - Vomiting [Unknown]

NARRATIVE: CASE EVENT DATE: 20251014
